FAERS Safety Report 5858599-4 (Version None)
Quarter: 2008Q3

REPORT INFORMATION
  Report Type: 
  Country: None (occurrence: None)
  Receive Date: 20080826
  Receipt Date: 20080813
  Transmission Date: 20090109
  Serious: Yes (Other)
  Sender: FDA-Public Use
  Company Number: FR-ELI_LILLY_AND_COMPANY-FR200806002035

PATIENT
  Age: 37 Year
  Sex: Male
  Weight: 90 kg

DRUGS (4)
  1. CYMBALTA [Suspect]
     Indication: DEPRESSION
     Dosage: 60 MG, DAILY (1/D)
     Route: 048
     Dates: start: 20080519, end: 20080527
  2. XANAX [Concomitant]
     Dosage: 0.25 MG, 3/D
     Route: 048
     Dates: start: 20080519
  3. STILNOX [Concomitant]
     Dosage: UNK, UNKNOWN
     Route: 048
     Dates: start: 20080519
  4. VITAMIN B6 [Concomitant]
     Dosage: UNK, UNKNOWN
     Route: 048
     Dates: start: 20080519

REACTIONS (2)
  - HYPERTENSION [None]
  - TREMOR [None]
